FAERS Safety Report 4948719-8 (Version None)
Quarter: 2006Q1

REPORT INFORMATION
  Report Type: 
  Country: None (occurrence: None)
  Receive Date: 20060314
  Receipt Date: 20060223
  Transmission Date: 20060701
  Serious: Yes (Hospitalization, Other)
  Sender: FDA-Public Use
  Company Number: FR8983714MAY2002

PATIENT
  Age: 77 Year
  Sex: Male

DRUGS (12)
  1. BISOPROLOL FUMARATE [Suspect]
     Dosage: 40 MG 1X PER 2 DAY ORAL
     Route: 048
     Dates: start: 20020227, end: 20020315
  2. MOTILIUM [Suspect]
     Dosage: ORAL
     Route: 048
     Dates: start: 20020221, end: 20020315
  3. OLMIFON (ADRAFINIL) [Suspect]
     Dosage: ORAL
     Route: 048
     Dates: start: 20020221, end: 20020315
  4. SYMPATHYL (CRATAEGUS EXTRACT/EXTRACTUM BOLDO/METHENAMINE/PEPTONE/PHENO [Suspect]
     Dosage: ORAL
     Route: 048
     Dates: start: 20020307, end: 20030315
  5. UTEPLEX (URIDINE 5-TRIPHOSPHATE) [Suspect]
     Dosage: ORAL
     Route: 048
     Dates: start: 20020307, end: 20020315
  6. BETAHISTINE (BETAHISTINE) [Concomitant]
  7. NISISCO (HYDROCHLOROTHIAZIDE/VALSARTAN) [Concomitant]
  8. GINKOR (GINKO TREE LEAVES EXTRACT/TROXERUTIN) [Concomitant]
  9. STABLON (TIANEPTINE) [Concomitant]
  10. FONZYLANE (BUFLOMEDIL HYDROCHLORIDE) [Concomitant]
  11. TAHOR (ATORVASTATIN) [Concomitant]
  12. PREVISCAN (FLUINDIONE) [Concomitant]

REACTIONS (12)
  - ALANINE AMINOTRANSFERASE INCREASED [None]
  - BLOOD PRESSURE SYSTOLIC INCREASED [None]
  - CHEST X-RAY ABNORMAL [None]
  - DISORIENTATION [None]
  - ERYTHEMA MULTIFORME [None]
  - GENITAL RASH [None]
  - MYCOPLASMA INFECTION [None]
  - ORAL SOFT TISSUE DISORDER [None]
  - PNEUMONIA [None]
  - STOMATITIS [None]
  - TOXIC EPIDERMAL NECROLYSIS [None]
  - TOXIC SKIN ERUPTION [None]
